FAERS Safety Report 16008806 (Version 3)
Quarter: 2019Q1

REPORT INFORMATION
  Report Type: Spontaneous
  Country: PT (occurrence: PT)
  Receive Date: 20190225
  Receipt Date: 20190327
  Transmission Date: 20190418
  Serious: Yes (Hospitalization, Other)
  Sender: FDA-Public Use
  Company Number: PT-SA-2019SA046592

PATIENT
  Age: 66 Year
  Sex: Male

DRUGS (10)
  1. HYDROCHLOROTHIAZIDE/TELMISARTAN [Suspect]
     Active Substance: HYDROCHLOROTHIAZIDE\TELMISARTAN
     Dosage: TELMISARTAN 80MG + HYDROCHLOROTHIAZIDE 12.5 MG, QD
     Route: 065
  2. CLOPIDOGREL BISULFATE. [Suspect]
     Active Substance: CLOPIDOGREL BISULFATE
     Dosage: 75 MG, QD
     Route: 065
  3. AMLODIPINE [Suspect]
     Active Substance: AMLODIPINE BESYLATE
     Indication: HYPERTENSION
     Dosage: 10 MG, QD
     Route: 065
  4. METFORMIN HYDROCHLORIDE. [Suspect]
     Active Substance: METFORMIN HYDROCHLORIDE
     Dosage: 1000 MG, BID
     Route: 065
  5. CANDESARTAN. [Concomitant]
     Active Substance: CANDESARTAN
     Dosage: 16 MG, QD
     Route: 065
  6. FLUOXETINE [Concomitant]
     Active Substance: FLUOXETINE HYDROCHLORIDE
     Indication: ADJUSTMENT DISORDER
     Dosage: 20 MG, QD
     Route: 065
     Dates: start: 201609
  7. NEBIVOLOL. [Suspect]
     Active Substance: NEBIVOLOL
     Indication: HYPERTENSION
     Dosage: 5 MG, QD
     Route: 065
  8. FUROSEMIDE. [Suspect]
     Active Substance: FUROSEMIDE
     Indication: HYPERTENSION
     Dosage: 40 MG, QD
     Route: 065
  9. ATORVASTATIN [Suspect]
     Active Substance: ATORVASTATIN
     Dosage: 20 MG, QD
     Route: 065
  10. PANTOPRAZOLE [Suspect]
     Active Substance: PANTOPRAZOLE
     Dosage: 20 MG, QD
     Route: 065

REACTIONS (16)
  - Renal ischaemia [Unknown]
  - Melaena [Recovering/Resolving]
  - Developmental delay [Unknown]
  - Haemoglobin decreased [Recovering/Resolving]
  - Asthenia [Unknown]
  - Anxiety [Unknown]
  - Renal failure [Unknown]
  - Duodenal ulcer [Recovering/Resolving]
  - Aortic aneurysm [Recovered/Resolved with Sequelae]
  - Swelling [Unknown]
  - Hypotension [Unknown]
  - Syncope [Unknown]
  - Duodenal ulcer haemorrhage [Recovering/Resolving]
  - Palpitations [Unknown]
  - Nausea [Unknown]
  - Renal artery thrombosis [Unknown]

NARRATIVE: CASE EVENT DATE: 2015
